FAERS Safety Report 16158691 (Version 1)
Quarter: 2019Q2

REPORT INFORMATION
  Report Type: Spontaneous
  Country: CZ (occurrence: CZ)
  Receive Date: 20190404
  Receipt Date: 20190404
  Transmission Date: 20190711
  Serious: Yes (Death, Other)
  Sender: FDA-Public Use
  Company Number: CZ-MYLANLABS-2019M1025355

PATIENT
  Age: 52 Year
  Sex: Female

DRUGS (11)
  1. PACLITAXEL. [Suspect]
     Active Substance: PACLITAXEL
     Indication: OVARIAN CANCER
     Dosage: 175 MILLIGRAM/SQ. METER, CYCLE
     Route: 065
     Dates: start: 201105, end: 201701
  2. PACLITAXEL. [Suspect]
     Active Substance: PACLITAXEL
     Dosage: 175 MILLIGRAM/SQ. METER, Q3W,6 CYCLIC
     Route: 065
     Dates: end: 201305
  3. CARBOPLATIN. [Suspect]
     Active Substance: CARBOPLATIN
     Dosage: UNK, CYCLE,(Q4W)
     Route: 065
     Dates: start: 201604
  4. DOXORUBICIN [Suspect]
     Active Substance: DOXORUBICIN
     Indication: OVARIAN CANCER
     Dosage: 1 UNK, CYCLE(4 WEEKS FOR A MINIMUM OF 6 CYCLES)
     Route: 065
     Dates: start: 201604
  5. CARBOPLATIN. [Suspect]
     Active Substance: CARBOPLATIN
     Dosage: UNK, Q3W
     Route: 065
     Dates: start: 201111
  6. PACLITAXEL. [Suspect]
     Active Substance: PACLITAXEL
     Dosage: 175 MILLIGRAM/SQ. METER, Q3W
     Route: 065
     Dates: end: 201111
  7. CARBOPLATIN. [Suspect]
     Active Substance: CARBOPLATIN
     Dosage: UNK, Q3W, UNK UNK, 6 CYCLIC (Q3W)
     Route: 065
     Dates: start: 201305, end: 201608
  8. PACLITAXEL. [Suspect]
     Active Substance: PACLITAXEL
     Dosage: 80 MILLIGRAM/SQ. METER
     Route: 065
     Dates: start: 201305, end: 201608
  9. CARBOPLATIN. [Suspect]
     Active Substance: CARBOPLATIN
     Indication: OVARIAN CANCER
     Dosage: 1 UNK, CYCLE(AUC 5 )
     Route: 065
     Dates: start: 201105, end: 201701
  10. PACLITAXEL. [Suspect]
     Active Substance: PACLITAXEL
     Dosage: 80 MILLIGRAM/SQ. METER, QW
     Route: 065
     Dates: start: 201608, end: 201701
  11. OLAPARIB. [Suspect]
     Active Substance: OLAPARIB
     Indication: CHEMOTHERAPY
     Dosage: 400 MILLIGRAM, BID
     Route: 048

REACTIONS (9)
  - Malignant neoplasm progression [Fatal]
  - Abdominal distension [Fatal]
  - Onychoclasis [Unknown]
  - Carbohydrate antigen 125 increased [Unknown]
  - Constipation [Fatal]
  - Neuropathy peripheral [Not Recovered/Not Resolved]
  - Decreased appetite [Fatal]
  - General physical health deterioration [Unknown]
  - Metastases to peritoneum [Fatal]

NARRATIVE: CASE EVENT DATE: 2011
